FAERS Safety Report 5463880-7 (Version None)
Quarter: 2007Q3

REPORT INFORMATION
  Report Type: 
  Country: None (occurrence: None)
  Receive Date: 20070427
  Receipt Date: 20070128
  Transmission Date: 20080115
  Serious: Yes (Other)
  Sender: FDA-Public Use
  Company Number: AEUSA200700034

PATIENT
  Age: 72 Year
  Sex: Male
  Weight: 83.9154 kg

DRUGS (4)
  1. GAMUNEX [Suspect]
     Indication: DERMATOMYOSITIS
     Dosage: 1 GM
     Dates: start: 20050201, end: 20060801
  2. FLEBOGAMMA [Suspect]
     Indication: DERMATOMYOSITIS
     Dates: start: 20060701, end: 20060701
  3. GAMMAGARD [Suspect]
     Indication: DERMATOMYOSITIS
     Dates: start: 20060101, end: 20060101
  4. CEFTIN [Concomitant]

REACTIONS (1)
  - HAEMOLYTIC ANAEMIA [None]
